FAERS Safety Report 6648272-7 (Version None)
Quarter: 2010Q1

REPORT INFORMATION
  Report Type: 
  Country: None (occurrence: None)
  Receive Date: 20100319
  Receipt Date: 20100305
  Transmission Date: 20100710
  Serious: Yes (Other)
  Sender: FDA-Public Use
  Company Number: 220012J10BRA

PATIENT
  Sex: Female

DRUGS (3)
  1. SAIZEN [Suspect]
     Indication: BLOOD GROWTH HORMONE
     Dosage: 3 DOSAGE FORMS, 1 IN 1 DAYS
     Dates: start: 20070604
  2. ESTRADIOL [Concomitant]
  3. TESTOSTERONE [Concomitant]

REACTIONS (3)
  - BREAST CALCIFICATIONS [None]
  - BREAST HYPERPLASIA [None]
  - CONDITION AGGRAVATED [None]
